FAERS Safety Report 8798222 (Version 2)
Quarter: 2015Q1

REPORT INFORMATION
  Report Type: Report from Study
  Country: US (occurrence: US)
  Receive Date: 20120920
  Receipt Date: 20150311
  Transmission Date: 20150721
  Serious: Yes (Death)
  Sender: FDA-Public Use
  Company Number: US-ROCHE-1104247

PATIENT
  Sex: Male
  Weight: 96.8 kg

DRUGS (8)
  1. ARANESP [Concomitant]
     Active Substance: DARBEPOETIN ALFA
     Route: 065
     Dates: start: 20051004
  2. AVASTIN [Suspect]
     Active Substance: BEVACIZUMAB
     Indication: RENAL CANCER
     Dosage: FROM STRENGTH: 100 MG AND 400 MG.?IN 250 ML NORMAL SALINE?15 MG/KG
     Route: 042
     Dates: start: 20050913
  3. AVASTIN [Suspect]
     Active Substance: BEVACIZUMAB
     Indication: MALIGNANT URINARY TRACT NEOPLASM
     Dosage: FROM STRENGTH: 100 MG AND 400 MG.?IN 250 ML NORMAL SALINE?15 MG/KG
     Route: 042
     Dates: start: 20051004
  4. TAXOL [Concomitant]
     Active Substance: PACLITAXEL
     Dosage: IN 500 ML NORMAL SALINE?150 MG/M2
     Route: 042
  5. NEULASTA [Concomitant]
     Active Substance: PEGFILGRASTIM
     Route: 058
  6. AVASTIN [Suspect]
     Active Substance: BEVACIZUMAB
     Dosage: FROM STRENGTH: 100 MG AND 400 MG.?IN 250 ML NORMAL SALINE?15 MG/KG
     Route: 042
     Dates: start: 20051115
  7. CARBOPLATIN. [Concomitant]
     Active Substance: CARBOPLATIN
     Dosage: IN 250 ML NORMAL SALINE
     Route: 042
  8. AVASTIN [Suspect]
     Active Substance: BEVACIZUMAB
     Dosage: FROM STRENGTH: 100 MG AND 400 MG.?IN 250 ML NORMAL SALINE?15 MG/KG
     Route: 042
     Dates: start: 20051025

REACTIONS (3)
  - Off label use [Unknown]
  - Fatigue [Unknown]
  - Death [Fatal]
